FAERS Safety Report 9187674 (Version 2)
Quarter: 2013Q2

REPORT INFORMATION
  Report Type: Spontaneous
  Country: US (occurrence: US)
  Receive Date: 20130325
  Receipt Date: 20130509
  Transmission Date: 20140414
  Serious: Yes (Other)
  Sender: FDA-Public Use
  Company Number: US-PFIZER INC-2013091544

PATIENT
  Age: 70 Year
  Sex: Female

DRUGS (4)
  1. SUTENT [Suspect]
     Indication: RENAL CANCER
     Dosage: 50 MG, UNK
     Dates: start: 20130117
  2. AMLODIPINE BESILATE [Concomitant]
     Dosage: UNK
  3. CLONIDINE HYDROCHLORIDE [Concomitant]
     Dosage: UNK
  4. TERAZOSIN HYDROCHLORIDE [Concomitant]
     Dosage: UNK

REACTIONS (1)
  - Lower limb fracture [Unknown]
